FAERS Safety Report 8965755 (Version 2)
Quarter: 2013Q4

REPORT INFORMATION
  Report Type: Spontaneous
  Country: GB (occurrence: GB)
  Receive Date: 20121206
  Receipt Date: 20131004
  Transmission Date: 20140711
  Serious: Yes (Death, Hospitalization, Other)
  Sender: FDA-Public Use
  Company Number: 2012SP003991

PATIENT
  Age: 59 Year
  Sex: Male

DRUGS (22)
  1. EPIRUBICIN [Suspect]
     Indication: ADENOCARCINOMA GASTRIC
  2. OXALIPLATIN [Suspect]
     Indication: ADENOCARCINOMA GASTRIC
  3. CAPECITABINE [Suspect]
     Indication: ADENOCARCINOMA GASTRIC
  4. CLOZARIL [Suspect]
     Indication: SCHIZOPHRENIA
     Route: 048
     Dates: start: 20010701, end: 20120718
  5. CLOZARIL [Suspect]
     Indication: SCHIZOPHRENIA
     Route: 048
     Dates: start: 20120721
  6. CLOZARIL [Suspect]
     Indication: SCHIZOPHRENIA
     Route: 048
  7. ASCORBIC ACID [Concomitant]
     Indication: VOMITING
     Route: 048
  8. ERGOCALCIFEROL [Concomitant]
     Indication: VOMITING
     Route: 048
  9. NICOTINAMIDE [Concomitant]
     Indication: VOMITING
     Route: 048
  10. PYRIDOXINE HYDROCHLORIDE [Concomitant]
     Indication: VOMITING
     Route: 048
  11. RETINOL PALMITATE [Concomitant]
     Indication: VOMITING
     Route: 048
  12. RIBOFLAVINE [Concomitant]
     Route: 048
  13. THIAMINE HYDROCHLORIDE [Concomitant]
     Indication: VOMITING
     Route: 048
  14. VITAMIN A PALMITATE /00056001/ [Concomitant]
     Indication: VOMITING
     Route: 048
  15. HALOPERIDOL [Concomitant]
     Indication: SCHIZOPHRENIA
     Route: 048
  16. ADENOSINE TRIPHOSPHATE [Concomitant]
     Indication: GASTRIC CANCER
     Route: 048
  17. CRATAEGUS /01349301/ [Concomitant]
     Indication: GASTRIC CANCER
     Route: 048
  18. MISTLETOE [Concomitant]
     Indication: GASTRIC CANCER
     Route: 048
  19. POTASSIUM ASPARTATE [Concomitant]
     Indication: GASTRIC CANCER
     Route: 048
  20. TROXERUTIN [Concomitant]
     Indication: GASTRIC CANCER
     Route: 048
  21. PROCYCLIDINE [Concomitant]
     Indication: EXTRAPYRAMIDAL DISORDER
     Route: 048
  22. THIAMIN [Concomitant]
     Indication: VOMITING
     Route: 048

REACTIONS (10)
  - Obstruction gastric [Fatal]
  - Differential white blood cell count abnormal [Unknown]
  - Neutrophil count decreased [Unknown]
  - Platelet count decreased [Unknown]
  - Malaise [Unknown]
  - White blood cell count increased [Unknown]
  - Diarrhoea [Recovered/Resolved with Sequelae]
  - Vomiting [Recovered/Resolved with Sequelae]
  - Weight decreased [Recovered/Resolved with Sequelae]
  - Adenocarcinoma gastric [Fatal]
